FAERS Safety Report 11197952 (Version 1)
Quarter: 2015Q2

REPORT INFORMATION
  Report Type: Spontaneous
  Country: US (occurrence: US)
  Receive Date: 20150617
  Receipt Date: 20150617
  Transmission Date: 20150821
  Serious: No
  Sender: FDA-Public Use
  Company Number: US-GALDERMA-US15001607

PATIENT
  Age: 61 Year
  Sex: Male

DRUGS (4)
  1. UNSPECIFIED SHAMPOO [Concomitant]
     Active Substance: UNSPECIFIED INGREDIENT
     Indication: THERAPEUTIC SKIN CARE TOPICAL
     Route: 061
  2. MIRVASO [Suspect]
     Active Substance: BRIMONIDINE TARTRATE
     Indication: ROSACEA
     Dosage: 0.33%
     Route: 061
  3. CETAPHIL [Concomitant]
     Active Substance: AVOBENZONE\OCTOCRYLENE\TRICLOSAN
     Indication: THERAPEUTIC SKIN CARE TOPICAL
     Route: 061
  4. UNSPECIFIED MULTI VITAMIN [Concomitant]
     Route: 048

REACTIONS (6)
  - Feeling hot [Not Recovered/Not Resolved]
  - Drug effect decreased [Not Recovered/Not Resolved]
  - Inappropriate schedule of drug administration [Not Recovered/Not Resolved]
  - Erythema [Not Recovered/Not Resolved]
  - Emotional distress [Not Recovered/Not Resolved]
  - Off label use [Not Recovered/Not Resolved]
